FAERS Safety Report 14473306 (Version 1)
Quarter: 2018Q1

REPORT INFORMATION
  Report Type: Spontaneous
  Country: US (occurrence: US)
  Receive Date: 20180201
  Receipt Date: 20180201
  Transmission Date: 20180509
  Serious: No
  Sender: FDA-Public Use
  Company Number: US-AUROBINDO-AUR-APL-2017-31627

PATIENT
  Sex: Female

DRUGS (3)
  1. DULOXETINE DELAYED-RELEASE CAPSULES USP 60 MG [Suspect]
     Active Substance: DULOXETINE HYDROCHLORIDE
     Indication: ANXIETY
  2. DULOXETINE DELAYED-RELEASE CAPSULES USP 60 MG [Suspect]
     Active Substance: DULOXETINE HYDROCHLORIDE
     Indication: DEPRESSION
  3. DULOXETINE DELAYED-RELEASE CAPSULES USP 60 MG [Suspect]
     Active Substance: DULOXETINE HYDROCHLORIDE
     Indication: PAIN
     Route: 048

REACTIONS (16)
  - Antisocial behaviour [Unknown]
  - Product substitution issue [Unknown]
  - Gastrointestinal disorder [Unknown]
  - Withdrawal syndrome [Unknown]
  - Feelings of worthlessness [Unknown]
  - Tremor [Unknown]
  - Sleep disorder [Unknown]
  - Asthenia [Unknown]
  - Dizziness [Unknown]
  - Drug ineffective [Unknown]
  - Abnormal behaviour [Unknown]
  - Anger [Unknown]
  - Self esteem decreased [Unknown]
  - Nasopharyngitis [Unknown]
  - Fear [Unknown]
  - Personal relationship issue [Unknown]
